FAERS Safety Report 9532189 (Version 1)
Quarter: 2013Q3

REPORT INFORMATION
  Report Type: Spontaneous
  Country: GR (occurrence: GR)
  Receive Date: 20130918
  Receipt Date: 20130918
  Transmission Date: 20140515
  Serious: Yes (Hospitalization, Other)
  Sender: FDA-Public Use
  Company Number: GR-INCYTE CORPORATION-2013IN002079

PATIENT
  Age: 70 Year
  Sex: Female

DRUGS (2)
  1. JAKAVI [Suspect]
     Indication: MYELOFIBROSIS
     Dosage: 2 DF, DAILY
     Route: 048
     Dates: start: 20130821, end: 20130904
  2. VALTREX [Concomitant]
     Dosage: UNK
     Dates: start: 20130821

REACTIONS (2)
  - Hepatic enzyme increased [Recovering/Resolving]
  - Cholelithiasis [Unknown]
